FAERS Safety Report 20820782 (Version 1)
Quarter: 2022Q2

REPORT INFORMATION
  Report Type: Spontaneous
  Country: SE (occurrence: SE)
  Receive Date: 20220512
  Receipt Date: 20220512
  Transmission Date: 20220721
  Serious: Yes (Other)
  Sender: FDA-Public Use
  Company Number: SE-JNJFOC-20220512388

PATIENT
  Age: 46 Year
  Sex: Male
  Weight: 60 kg

DRUGS (5)
  1. STELARA [Suspect]
     Active Substance: USTEKINUMAB
     Indication: Crohn^s disease
     Route: 042
     Dates: start: 20211215
  2. STELARA [Suspect]
     Active Substance: USTEKINUMAB
     Route: 058
     Dates: start: 20220209
  3. STELARA [Suspect]
     Active Substance: USTEKINUMAB
     Route: 058
     Dates: start: 20220409
  4. CREON [Concomitant]
     Active Substance: PANCRELIPASE AMYLASE\PANCRELIPASE LIPASE\PANCRELIPASE PROTEASE
     Dosage: 5000 U PER MEAL
  5. OMEPRAZOLE [Concomitant]
     Active Substance: OMEPRAZOLE

REACTIONS (4)
  - Dyschromatopsia [Unknown]
  - Dry eye [Unknown]
  - Asthenopia [Unknown]
  - Skin abrasion [Unknown]

NARRATIVE: CASE EVENT DATE: 20220201
